FAERS Safety Report 24667966 (Version 1)
Quarter: 2024Q4

REPORT INFORMATION
  Report Type: Spontaneous
  Country: US (occurrence: US)
  Receive Date: 20241127
  Receipt Date: 20241127
  Transmission Date: 20250114
  Serious: No
  Sender: AMGEN
  Company Number: US-AMGEN-USASP2024231076

PATIENT
  Age: 46 Year
  Sex: Female

DRUGS (1)
  1. KANJINTI [Suspect]
     Active Substance: TRASTUZUMAB-ANNS
     Indication: Breast cancer
     Dosage: 529.8 MILLIGRAM (STRENGTH: 420 MG)
     Route: 065

REACTIONS (1)
  - Post procedural cellulitis [Unknown]

NARRATIVE: CASE EVENT DATE: 20241118
